FAERS Safety Report 4383542-7 (Version None)
Quarter: 2004Q2

REPORT INFORMATION
  Report Type: 
  Country: None (occurrence: None)
  Receive Date: 20040623
  Receipt Date: 20040331
  Transmission Date: 20050107
  Serious: No
  Sender: FDA-Public Use
  Company Number: US-BRISTOL-MYERS SQUIBB COMPANY-12548434

PATIENT
  Age: 58 Year
  Sex: Female

DRUGS (8)
  1. ERBITUX [Suspect]
     Indication: COLON CANCER
     Route: 042
     Dates: start: 20040330, end: 20040330
  2. ALOXI [Concomitant]
     Route: 042
  3. ATROPINE [Concomitant]
     Dosage: PRIOR TO CPT-11
     Route: 058
  4. BENADRYL [Concomitant]
     Route: 042
  5. CPT-11 [Concomitant]
  6. DECADRON [Concomitant]
     Route: 042
  7. TAGAMET [Concomitant]
     Route: 042
  8. TYLENOL [Concomitant]
     Route: 048

REACTIONS (3)
  - FACE OEDEMA [None]
  - OEDEMA PERIPHERAL [None]
  - RASH [None]
